FAERS Safety Report 7688293-9 (Version None)
Quarter: 2011Q3

REPORT INFORMATION
  Report Type: 
  Country: None (occurrence: None)
  Receive Date: 20110817
  Receipt Date: 20101122
  Transmission Date: 20111222
  Serious: No
  Sender: FDA-Public Use
  Company Number: US-KINGPHARMUSA00001-K201001425

PATIENT
  Sex: Female
  Weight: 56.689 kg

DRUGS (3)
  1. CYTOMEL [Suspect]
     Indication: AUTOIMMUNE THYROIDITIS
     Dosage: 80 MCG, QD
     Route: 048
     Dates: start: 20090101, end: 20090101
  2. VITAMINS, OTHER COMBINATIONS [Concomitant]
  3. SYNTHROID [Suspect]
     Indication: AUTOIMMUNE THYROIDITIS
     Dosage: 100 MCG, QD
     Route: 048
     Dates: start: 20090101, end: 20090101

REACTIONS (3)
  - ANTIGLIADIN ANTIBODY POSITIVE [None]
  - GASTROINTESTINAL PAIN [None]
  - ABDOMINAL PAIN [None]
